FAERS Safety Report 5827137-4 (Version None)
Quarter: 2008Q3

REPORT INFORMATION
  Report Type: 
  Country: None (occurrence: None)
  Receive Date: 20080729
  Receipt Date: 20080729
  Transmission Date: 20090109
  Serious: Yes (Hospitalization, Other)
  Sender: FDA-Public Use
  Company Number: None

PATIENT
  Age: 8 Year
  Sex: Male
  Weight: 29.4838 kg

DRUGS (1)
  1. ESKALITH CR [Suspect]
     Indication: BIPOLAR DISORDER
     Dosage: LITHIUM CR 600 MG PO
     Route: 048
     Dates: start: 20060810, end: 20070308

REACTIONS (8)
  - BLOOD CREATININE DECREASED [None]
  - CONFUSIONAL STATE [None]
  - DIABETES INSIPIDUS [None]
  - DRUG EFFECT DECREASED [None]
  - DRUG LEVEL DECREASED [None]
  - DRY MOUTH [None]
  - ENURESIS [None]
  - URINARY TRACT INFECTION [None]
